FAERS Safety Report 5706785-6 (Version None)
Quarter: 2008Q2

REPORT INFORMATION
  Report Type: 
  Country: None (occurrence: None)
  Receive Date: 20080415
  Receipt Date: 20080415
  Transmission Date: 20081010
  Serious: Yes (Other)
  Sender: FDA-Public Use
  Company Number: None

PATIENT
  Age: 42 Year
  Sex: Female
  Weight: 72.5755 kg

DRUGS (1)
  1. LYRICA [Suspect]
     Indication: AKATHISIA
     Dosage: 200 MG 3 X DAILY PO
     Route: 048
     Dates: start: 20070401, end: 20080414

REACTIONS (1)
  - WEIGHT INCREASED [None]
